FAERS Safety Report 11958143 (Version 2)
Quarter: 2016Q1

REPORT INFORMATION
  Report Type: Spontaneous
  Country: US (occurrence: US)
  Receive Date: 20160126
  Receipt Date: 20160129
  Transmission Date: 20160526
  Serious: Yes (Hospitalization, Other)
  Sender: FDA-Public Use
  Company Number: US-ABBVIE-15K-163-1337834-00

PATIENT
  Age: 58 Year
  Sex: Female

DRUGS (2)
  1. HUMIRA [Suspect]
     Active Substance: ADALIMUMAB
     Indication: CROHN^S DISEASE
     Route: 058
     Dates: start: 20141017, end: 20141017
  2. HUMIRA [Suspect]
     Active Substance: ADALIMUMAB
     Route: 058
     Dates: start: 201502

REACTIONS (7)
  - Crohn^s disease [Not Recovered/Not Resolved]
  - Stoma site haemorrhage [Not Recovered/Not Resolved]
  - Frequent bowel movements [Not Recovered/Not Resolved]
  - Mucous stools [Not Recovered/Not Resolved]
  - Crohn^s disease [Recovered/Resolved]
  - Haematochezia [Not Recovered/Not Resolved]
  - Colon operation [Recovered/Resolved]

NARRATIVE: CASE EVENT DATE: 20141022
